FAERS Safety Report 5084289-4 (Version None)
Quarter: 2006Q3

REPORT INFORMATION
  Report Type: 
  Country: None (occurrence: None)
  Receive Date: 20060821
  Receipt Date: 20060717
  Transmission Date: 20061208
  Serious: Yes (Hospitalization)
  Sender: FDA-Public Use
  Company Number: US-AMGEN-STX186674

PATIENT
  Sex: Male
  Weight: 84 kg

DRUGS (2)
  1. ENBREL [Suspect]
     Indication: PSORIASIS
     Route: 058
     Dates: start: 20050415
  2. COUMADIN [Concomitant]

REACTIONS (4)
  - AORTIC ANEURYSM [None]
  - AORTIC STENOSIS [None]
  - CORONARY ARTERY DISEASE [None]
  - PLATELET COUNT DECREASED [None]
